FAERS Safety Report 8322273-5 (Version None)
Quarter: 2012Q2

REPORT INFORMATION
  Report Type: 
  Country: None (occurrence: None)
  Receive Date: 20120430
  Receipt Date: 20120425
  Transmission Date: 20120825
  Serious: Yes (Hospitalization)
  Sender: FDA-Public Use
  Company Number: ZA-PFIZER INC-2012103345

PATIENT
  Sex: Male

DRUGS (2)
  1. ZITHROMAX [Suspect]
  2. CORDARONE [Interacting]

REACTIONS (1)
  - DRUG INTERACTION [None]
